FAERS Safety Report 5663497-5 (Version None)
Quarter: 2008Q1

REPORT INFORMATION
  Report Type: 
  Country: None (occurrence: None)
  Receive Date: 20080313
  Receipt Date: 20080304
  Transmission Date: 20080703
  Serious: Yes (Other)
  Sender: FDA-Public Use
  Company Number: CN-GENENTECH-257427

PATIENT

DRUGS (3)
  1. MABTHERA [Suspect]
     Indication: PEMPHIGUS
     Dosage: 600 MG, UNK
     Route: 042
     Dates: start: 20080201, end: 20080201
  2. AVELOX [Concomitant]
     Indication: DRUG USE FOR UNKNOWN INDICATION
  3. VANCOMYCIN [Concomitant]
     Indication: DRUG USE FOR UNKNOWN INDICATION

REACTIONS (1)
  - HAEMOLYTIC ANAEMIA [None]
